FAERS Safety Report 15356441 (Version 1)
Quarter: 2018Q3

REPORT INFORMATION
  Report Type: Spontaneous
  Country: US (occurrence: US)
  Receive Date: 20180830
  Receipt Date: 20180830
  Transmission Date: 20181010
  Serious: Yes (Hospitalization)
  Sender: FDA-Public Use
  Company Number: None

PATIENT
  Sex: Male

DRUGS (13)
  1. LANTUS [Concomitant]
     Active Substance: INSULIN GLARGINE
  2. OMNITROPE [Concomitant]
     Active Substance: SOMATROPIN
  3. SMZ/TMP [Concomitant]
     Active Substance: SULFAMETHOXAZOLE\TRIMETHOPRIM
  4. CEPHALEXIN. [Concomitant]
     Active Substance: CEPHALEXIN
  5. MONTELUKAST [Concomitant]
     Active Substance: MONTELUKAST SODIUM
  6. APAP/CODEINE [Concomitant]
     Active Substance: ACETAMINOPHEN\CODEINE PHOSPHATE
  7. PULMOZYME [Concomitant]
     Active Substance: DORNASE ALFA
  8. PREDNISONE. [Concomitant]
     Active Substance: PREDNISONE
  9. TOBRAMYCIN. [Suspect]
     Active Substance: TOBRAMYCIN
     Indication: CYSTIC FIBROSIS
     Dosage: ?          OTHER FREQUENCY:QD X28, OFF 28;?
     Route: 045
     Dates: start: 20170920
  10. BUDESONIDE. [Concomitant]
     Active Substance: BUDESONIDE
  11. CREON [Concomitant]
     Active Substance: PANCRELIPASE AMYLASE\PANCRELIPASE LIPASE\PANCRELIPASE PROTEASE
  12. GLUCAGON. [Concomitant]
     Active Substance: GLUCAGON
  13. NOVOLOG [Concomitant]
     Active Substance: INSULIN ASPART

REACTIONS (2)
  - Nasal polypectomy [None]
  - Meningioma surgery [None]
